FAERS Safety Report 9450019 (Version 1)
Quarter: 2013Q3

REPORT INFORMATION
  Report Type: Spontaneous
  Country: US (occurrence: US)
  Receive Date: 20130809
  Receipt Date: 20130809
  Transmission Date: 20140515
  Serious: Yes (Other)
  Sender: FDA-Public Use
  Company Number: US-PFIZER INC-2013230498

PATIENT
  Age: 60 Year
  Sex: Female
  Weight: 98.87 kg

DRUGS (5)
  1. CELEBREX [Suspect]
     Indication: ARTHRITIS
     Dosage: 200 MG DAILY
  2. LYRICA [Suspect]
     Indication: NEUROPATHY PERIPHERAL
     Dosage: 75 MG, 2X/DAY
  3. LYRICA [Suspect]
     Indication: NEURALGIA
  4. LISINOPRIL [Concomitant]
     Indication: HYPERTENSION
     Dosage: 10 MG DAILY
  5. HYDROCHLOROTHIAZIDE WITH TRIAMTERENE [Concomitant]
     Indication: HYPERTENSION
     Dosage: (HYDROCHLOROTHIAZIDE 25 MG/ TRIAMTERENE 37.5 MG ) DAILY

REACTIONS (2)
  - Brain neoplasm [Not Recovered/Not Resolved]
  - Convulsion [Unknown]
